FAERS Safety Report 9633866 (Version 1)
Quarter: 2013Q4

REPORT INFORMATION
  Report Type: Spontaneous
  Country: US (occurrence: None)
  Receive Date: 20131017
  Receipt Date: 20131017
  Transmission Date: 20140711
  Serious: Yes (Hospitalization)
  Sender: FDA-Public Use
  Company Number: US-000780

PATIENT
  Sex: Female

DRUGS (8)
  1. GATTEX [Suspect]
     Dosage: QD, STREN/VOLUM: 0.38/FREQU: DAILY SUBCUTANEOUS)
     Route: 058
     Dates: start: 20130828, end: 20130912
  2. SOLUTIONS FOR PARENTERALNUTRITION [Concomitant]
  3. DILAUDID [Concomitant]
  4. PHENNERGAN [Concomitant]
  5. LEVOTHYROXINE [Concomitant]
  6. DIAZEPAM [Concomitant]
  7. AMBIEN [Concomitant]
  8. VENLAFAXINE [Concomitant]

REACTIONS (3)
  - Nausea [None]
  - Eating disorder [None]
  - Abdominal pain [None]
